FAERS Safety Report 16899380 (Version 1)
Quarter: 2019Q4

REPORT INFORMATION
  Report Type: Spontaneous
  Country: US (occurrence: US)
  Receive Date: 20190815
  Receipt Date: 20190815
  Transmission Date: 20200122
  Serious: Yes (Hospitalization)
  Sender: FDA-Public Use
  Company Number: None

PATIENT
  Age: 42 Year
  Sex: Male
  Weight: 77.11 kg

DRUGS (4)
  1. NAB-PACLITAXEL [Suspect]
     Active Substance: PACLITAXEL
     Indication: PANCREATIC CARCINOMA
     Dosage: ?          OTHER FREQUENCY:28-DAY CYCLE;?
     Route: 042
     Dates: start: 20190311, end: 20190429
  2. CHEMORADIATION (RADIATION THERAPY) [Suspect]
     Active Substance: RADIATION THERAPY
     Indication: PANCREATIC CARCINOMA
     Dosage: ?          OTHER FREQUENCY:5DAY/WEEK;?
     Route: 042
     Dates: start: 20190522, end: 20190626
  3. 5-FU [Suspect]
     Active Substance: FLUOROURACIL
  4. GEMCITABINE. [Suspect]
     Active Substance: GEMCITABINE
     Indication: PANCREATIC CARCINOMA
     Route: 042
     Dates: start: 20190311, end: 20190429

REACTIONS (10)
  - Nausea [None]
  - Bladder spasm [None]
  - Constipation [None]
  - Night sweats [None]
  - Cold sweat [None]
  - Candida infection [None]
  - Therapeutic product effect decreased [None]
  - Post procedural complication [None]
  - Vomiting [None]
  - Pyrexia [None]

NARRATIVE: CASE EVENT DATE: 20190809
